FAERS Safety Report 25377795 (Version 1)
Quarter: 2025Q2

REPORT INFORMATION
  Report Type: Report from Study
  Country: US (occurrence: US)
  Receive Date: 20250530
  Receipt Date: 20250530
  Transmission Date: 20250716
  Serious: Yes (Other)
  Sender: TAKEDA
  Company Number: US-TAKEDA-2025TUS048788

PATIENT
  Sex: Female

DRUGS (1)
  1. VEDOLIZUMAB [Suspect]
     Active Substance: VEDOLIZUMAB
     Indication: Colitis ulcerative

REACTIONS (6)
  - Rectal haemorrhage [Unknown]
  - Gastritis [Unknown]
  - Diarrhoea [Unknown]
  - Abnormal weight gain [Unknown]
  - Faecal calprotectin increased [Unknown]
  - Abdominal pain [Unknown]
